FAERS Safety Report 24786536 (Version 1)
Quarter: 2024Q4

REPORT INFORMATION
  Report Type: Spontaneous
  Country: CN (occurrence: CN)
  Receive Date: 20241230
  Receipt Date: 20241230
  Transmission Date: 20250115
  Serious: Yes (Other)
  Sender: ABBVIE
  Company Number: CN-ABBVIE-6064419

PATIENT
  Age: 27 Year
  Sex: Male
  Weight: 50 kg

DRUGS (3)
  1. VENETOCLAX [Suspect]
     Active Substance: VENETOCLAX
     Indication: Adjuvant therapy
     Route: 048
     Dates: start: 20240930, end: 20241030
  2. OMACETAXINE MEPESUCCINATE [Suspect]
     Active Substance: OMACETAXINE MEPESUCCINATE
     Indication: Chemotherapy
     Route: 041
     Dates: start: 20240930, end: 20241002
  3. AZACITIDINE [Suspect]
     Active Substance: AZACITIDINE
     Indication: Chemotherapy
     Dosage: AZACITIDINE FOR INJECTION
     Route: 058
     Dates: start: 20240930, end: 20241005

REACTIONS (2)
  - Myelosuppression [Recovering/Resolving]
  - Platelet count decreased [Unknown]

NARRATIVE: CASE EVENT DATE: 20241221
